FAERS Safety Report 7824967-4 (Version None)
Quarter: 2011Q4

REPORT INFORMATION
  Report Type: 
  Country: None (occurrence: None)
  Receive Date: 20111019
  Receipt Date: 20110502
  Transmission Date: 20120403
  Serious: No
  Sender: FDA-Public Use
  Company Number: US-BRISTOL-MYERS SQUIBB COMPANY-15618853

PATIENT
  Age: 79 Year
  Sex: Male

DRUGS (6)
  1. LASIX [Concomitant]
  2. AVALIDE [Suspect]
     Indication: HYPERTENSION
     Dosage: 1 DF=300/12.5MG  ABOUT 2 TO 3 YEARS. RESTARTED:23MAY08
     Route: 048
     Dates: start: 20080318
  3. POTASSIUM CHLORIDE [Concomitant]
  4. TOPROL-XL [Concomitant]
  5. OSTEO BI-FLEX [Concomitant]
     Indication: ARTHRITIS
  6. BLOOD PRESSURE MEDICATION [Concomitant]

REACTIONS (1)
  - POLLAKIURIA [None]
